FAERS Safety Report 25791584 (Version 2)
Quarter: 2025Q3

REPORT INFORMATION
  Report Type: Spontaneous
  Country: CH (occurrence: CH)
  Receive Date: 20250911
  Receipt Date: 20250916
  Transmission Date: 20251021
  Serious: Yes (Death, Life-Threatening, Hospitalization, Other)
  Sender: PFIZER
  Company Number: CH-MLMSERVICE-20250905-PI630344-00312-3

PATIENT
  Age: 38 Year
  Sex: Male
  Weight: 125 kg

DRUGS (16)
  1. SOMATROPIN [Suspect]
     Active Substance: SOMATROPIN
     Dosage: 6 IU, DAILY
  2. TESTOSTERONE PROPIONATE [Suspect]
     Active Substance: TESTOSTERONE PROPIONATE
     Dosage: 300 MG, WEEKLY
  3. TESTOSTERONE [Suspect]
     Active Substance: TESTOSTERONE
     Route: 048
  4. NANDROLONE PHENPROPIONATE [Suspect]
     Active Substance: NANDROLONE PHENPROPIONATE
     Dosage: 300 MG, WEEKLY
  5. BOLDENONE [Suspect]
     Active Substance: BOLDENONE
  6. METHANDROSTENOLONE [Suspect]
     Active Substance: METHANDROSTENOLONE
  7. NANDROLONE DECANOATE [Suspect]
     Active Substance: NANDROLONE DECANOATE
  8. OXANDROLONE [Suspect]
     Active Substance: OXANDROLONE
  9. STANOZOLOL [Suspect]
     Active Substance: STANOZOLOL
  10. TESTOSTERONE ENANTHATE [Suspect]
     Active Substance: TESTOSTERONE ENANTHATE
  11. TRENBOLONE [Suspect]
     Active Substance: TRENBOLONE
  12. INSULIN NOS [Concomitant]
     Active Substance: INSULIN NOS
     Dosage: 10 IU, DAILY
  13. CLOMIPHENE [Concomitant]
     Active Substance: CLOMIPHENE
  14. RILPIVIRINE [Concomitant]
     Active Substance: RILPIVIRINE
     Indication: HIV infection CDC category A
  15. TENOFOVIR ALAFENAMIDE [Concomitant]
     Active Substance: TENOFOVIR ALAFENAMIDE
     Indication: HIV infection CDC category A
  16. EMTRICITABINE [Concomitant]
     Active Substance: EMTRICITABINE
     Indication: HIV infection CDC category A

REACTIONS (6)
  - Cardiovascular disorder [Fatal]
  - Pulmonary embolism [Fatal]
  - Toxic cardiomyopathy [Recovered/Resolved]
  - Hypertension [Recovered/Resolved]
  - Polycythaemia [Recovered/Resolved]
  - Splenomegaly [Recovering/Resolving]

NARRATIVE: CASE EVENT DATE: 20230801
